FAERS Safety Report 8769795 (Version 3)
Quarter: 2013Q4

REPORT INFORMATION
  Report Type: Spontaneous
  Country: AU (occurrence: AU)
  Receive Date: 20120905
  Receipt Date: 20131111
  Transmission Date: 20140711
  Serious: Yes (Life-Threatening)
  Sender: FDA-Public Use
  Company Number: AU-MERCK-2012SP025295

PATIENT
  Age: 39 Year
  Sex: Female
  Weight: 84 kg

DRUGS (5)
  1. SAPHRIS [Suspect]
     Indication: PSYCHOTIC DISORDER
     Dosage: WAFER, 5 MG, ONCE
     Route: 060
     Dates: start: 20120510, end: 20120510
  2. NEULACTIL [Concomitant]
     Indication: ANXIETY
     Dosage: UNK UNK, UNKNOWN
     Route: 065
  3. LITHIUM [Concomitant]
     Dosage: UNK UNK, UNKNOWN
     Route: 065
  4. VALIUM [Concomitant]
     Dosage: UPDATE (14MAY2012): UNIT DOSE: 10, FORM STRENGTH: 5 MG
     Route: 065
     Dates: start: 20120509, end: 20120509
  5. CIPRAMIL [Concomitant]
     Dosage: UPDATE (14MAY2012)
     Route: 065

REACTIONS (5)
  - Anaphylactic reaction [Unknown]
  - Hyperaesthesia [Unknown]
  - Off label use [Unknown]
  - Oropharyngeal swelling [Unknown]
  - Swollen tongue [Unknown]
